FAERS Safety Report 4376855-6 (Version None)
Quarter: 2004Q2

REPORT INFORMATION
  Report Type: 
  Country: None (occurrence: None)
  Receive Date: 20040609
  Receipt Date: 20040325
  Transmission Date: 20050107
  Serious: Yes (Other)
  Sender: FDA-Public Use
  Company Number: US-SHR-03-003404

PATIENT
  Age: 45 Year
  Sex: Female

DRUGS (1)
  1. YASMIN [Suspect]
     Indication: HORMONE REPLACEMENT THERAPY
     Dates: start: 20021201, end: 20030101

REACTIONS (1)
  - DEEP VEIN THROMBOSIS [None]
